FAERS Safety Report 7369302-3 (Version None)
Quarter: 2011Q1

REPORT INFORMATION
  Report Type: 
  Country: None (occurrence: None)
  Receive Date: 20110323
  Receipt Date: 20110314
  Transmission Date: 20110831
  Serious: Yes (Hospitalization)
  Sender: FDA-Public Use
  Company Number: B0699396A

PATIENT
  Age: 42 Year
  Sex: Male
  Weight: 115.9 kg

DRUGS (4)
  1. CRESTOR [Concomitant]
  2. INSULIN [Concomitant]
  3. AVANDIA [Suspect]
     Indication: DIABETES MELLITUS
     Route: 048
     Dates: start: 20020601, end: 20051101
  4. COREG [Concomitant]

REACTIONS (3)
  - STENT PLACEMENT [None]
  - MYOCARDIAL INFARCTION [None]
  - ANGINA PECTORIS [None]
